FAERS Safety Report 9434432 (Version 2)
Quarter: 2013Q4

REPORT INFORMATION
  Report Type: Spontaneous
  Country: US (occurrence: US)
  Receive Date: 20130801
  Receipt Date: 20131101
  Transmission Date: 20140711
  Serious: Yes (Other)
  Sender: FDA-Public Use
  Company Number: US-JNJFOC-20130714365

PATIENT
  Age: 39 Year
  Sex: Female

DRUGS (11)
  1. STELARA [Suspect]
     Indication: PSORIASIS
     Route: 058
     Dates: start: 20120506
  2. METHOTREXATE [Concomitant]
     Route: 048
     Dates: start: 201206
  3. CIMZIA [Concomitant]
     Route: 030
     Dates: start: 2011
  4. KLONOPIN [Concomitant]
     Dosage: 5/500 MG
     Route: 048
  5. HYDROCODONE [Concomitant]
     Dosage: 5/500 MG
     Route: 048
  6. NAPROXEN [Concomitant]
     Dosage: 5/500 MG
     Route: 048
  7. TRAMADOL [Concomitant]
     Dosage: 5/500 MG
     Route: 048
  8. TOPAMAX [Concomitant]
     Dosage: 5/500 MG
     Route: 048
  9. ALBUTEROL [Concomitant]
     Dosage: 5/500 MG
     Route: 065
  10. CYCLOBENZAPRINE [Concomitant]
     Dosage: 5/500 MG
     Route: 048
  11. LEFLUNOMIDE [Concomitant]
     Dosage: 5/500 MG
     Route: 048

REACTIONS (1)
  - Lyme disease [Recovered/Resolved with Sequelae]
